FAERS Safety Report 25829479 (Version 3)
Quarter: 2025Q4

REPORT INFORMATION
  Report Type: Other
  Country: US (occurrence: US)
  Receive Date: 20250922
  Receipt Date: 20251125
  Transmission Date: 20260118
  Serious: No
  Sender: TRAVERE THERAPEUTICS
  Company Number: US-TRAVERE-2025TVT01376

PATIENT
  Sex: Male

DRUGS (2)
  1. FILSPARI [Suspect]
     Active Substance: SPARSENTAN
     Indication: IgA nephropathy
     Dosage: 200 MG DAILY 1-14 DAYS  THEN 400 MG DAYS 15-30
     Route: 048
     Dates: start: 202507
  2. FILSPARI [Suspect]
     Active Substance: SPARSENTAN
     Route: 048
     Dates: start: 202507

REACTIONS (3)
  - Hypotension [Unknown]
  - Joint swelling [Unknown]
  - Fatigue [Unknown]
